FAERS Safety Report 8825608 (Version 2)
Quarter: 2012Q4

REPORT INFORMATION
  Report Type: 
  Country: US (occurrence: US)
  Receive Date: 20121004
  Receipt Date: 20121022
  Transmission Date: 20130627
  Serious: Yes (Other)
  Sender: FDA-Public Use
  Company Number: US-PFIZER INC-2012239982

PATIENT
  Age: 21 Month
  Sex: Male
  Weight: 14.06 kg

DRUGS (2)
  1. BENEFIX [Suspect]
     Indication: HAEMORRHAGE
     Dosage: UNK
  2. BENEFIX [Suspect]
     Indication: FACTOR IX DEFICIENCY

REACTIONS (1)
  - Drug hypersensitivity [Unknown]
